FAERS Safety Report 5315962-8 (Version None)
Quarter: 2007Q2

REPORT INFORMATION
  Report Type: 
  Country: None (occurrence: None)
  Receive Date: 20070503
  Receipt Date: 20070420
  Transmission Date: 20071010
  Serious: Yes (Other)
  Sender: FDA-Public Use
  Company Number: JP-ROCHE-444026

PATIENT
  Age: 3 Year
  Sex: Male
  Weight: 14 kg

DRUGS (7)
  1. TAMIFLU [Suspect]
     Route: 048
     Dates: start: 20060401, end: 20060401
  2. TAMIFLU [Suspect]
     Route: 048
     Dates: start: 20060331, end: 20060331
  3. TAMIFLU [Suspect]
     Dosage: FORM: DRY SYRUP.
     Route: 048
     Dates: start: 20060330, end: 20060330
  4. TAMIFLU [Suspect]
     Route: 048
     Dates: start: 20050328, end: 20050402
  5. PERIACTIN [Concomitant]
     Route: 048
     Dates: start: 20060330, end: 20060403
  6. MUCODYNE [Concomitant]
     Route: 048
     Dates: start: 20060330, end: 20060408
  7. ASVERIN [Concomitant]
     Route: 048
     Dates: start: 20060330, end: 20060408

REACTIONS (1)
  - DEPRESSED LEVEL OF CONSCIOUSNESS [None]
